FAERS Safety Report 14506036 (Version 1)
Quarter: 2018Q1

REPORT INFORMATION
  Report Type: Spontaneous
  Country: US (occurrence: US)
  Receive Date: 20180207
  Receipt Date: 20180207
  Transmission Date: 20180509
  Serious: No
  Sender: FDA-Public Use
  Company Number: None

PATIENT
  Sex: Male

DRUGS (1)
  1. DESONIDE. [Suspect]
     Active Substance: DESONIDE
     Indication: PIGMENTATION DISORDER
     Dosage: ?          QUANTITY:1 APPLICATION;?
     Route: 061
     Dates: start: 20180207, end: 20180207

REACTIONS (4)
  - Abdominal discomfort [None]
  - Nausea [None]
  - Vomiting [None]
  - Frequent bowel movements [None]

NARRATIVE: CASE EVENT DATE: 20180207
